FAERS Safety Report 5257013-X (Version None)
Quarter: 2007Q1

REPORT INFORMATION
  Report Type: 
  Country: None (occurrence: None)
  Receive Date: 20070305
  Receipt Date: 20070305
  Transmission Date: 20070707
  Serious: Yes (Other)
  Sender: FDA-Public Use
  Company Number: None

PATIENT
  Age: 47 Year
  Sex: Male
  Weight: 89.3586 kg

DRUGS (1)
  1. PREVACID [Suspect]
     Indication: GASTROOESOPHAGEAL REFLUX DISEASE
     Dosage: SOLUTAB 30 MG 1/DAY PO
     Route: 048
     Dates: start: 20070124, end: 20070213

REACTIONS (3)
  - DIARRHOEA [None]
  - FOOD POISONING [None]
  - WEIGHT DECREASED [None]
